FAERS Safety Report 9410703 (Version 2)
Quarter: 2013Q3

REPORT INFORMATION
  Report Type: Spontaneous
  Country: US (occurrence: US)
  Receive Date: 20130719
  Receipt Date: 20130918
  Transmission Date: 20140515
  Serious: Yes (Other)
  Sender: FDA-Public Use
  Company Number: US-JNJFOC-20130706207

PATIENT
  Sex: 0

DRUGS (20)
  1. DOXORUBICIN [Suspect]
     Indication: PLASMA CELL MYELOMA
     Route: 042
  2. DOXORUBICIN [Suspect]
     Indication: PLASMA CELL MYELOMA
     Route: 042
  3. VINCRISTINE [Suspect]
     Indication: PLASMA CELL MYELOMA
     Route: 065
  4. DEXAMETHASONE [Suspect]
     Indication: PLASMA CELL MYELOMA
     Route: 065
  5. DEXAMETHASONE [Suspect]
     Indication: PLASMA CELL MYELOMA
     Route: 065
  6. DEXAMETHASONE [Suspect]
     Indication: PLASMA CELL MYELOMA
     Route: 065
  7. CYCLOPHOSPHAMIDE [Suspect]
     Indication: PLASMA CELL MYELOMA
     Route: 065
  8. CYCLOPHOSPHAMIDE [Suspect]
     Indication: PLASMA CELL MYELOMA
     Route: 065
  9. ETOPOSIDE [Suspect]
     Indication: PLASMA CELL MYELOMA
     Route: 065
  10. CISPLATIN [Suspect]
     Indication: PLASMA CELL MYELOMA
     Route: 065
  11. MELPHALAN [Suspect]
     Indication: PLASMA CELL MYELOMA
     Route: 065
  12. THALIDOMIDE [Suspect]
     Indication: PLASMA CELL MYELOMA
     Route: 065
  13. PROCRIT [Concomitant]
     Indication: PLASMA CELL MYELOMA
     Route: 065
  14. UNSPECIFIED LOW-MOLECULAR WEIGHT HEPARIN [Concomitant]
     Indication: PROPHYLAXIS
     Route: 065
  15. FERROUS SULFATE [Concomitant]
     Indication: TRANSFERRIN SATURATION DECREASED
     Route: 048
  16. FERROUS SULFATE [Concomitant]
     Indication: SERUM FERRITIN DECREASED
     Route: 048
  17. FERROUS GLUCONATE [Concomitant]
     Indication: TRANSFERRIN SATURATION DECREASED
     Route: 065
  18. FERROUS GLUCONATE [Concomitant]
     Indication: SERUM FERRITIN DECREASED
     Route: 065
  19. VITAMIN C [Concomitant]
     Indication: TRANSFERRIN SATURATION DECREASED
     Route: 048
  20. VITAMIN C [Concomitant]
     Indication: SERUM FERRITIN DECREASED
     Route: 048

REACTIONS (8)
  - Pneumonia [Unknown]
  - Hyponatraemia [Unknown]
  - Pyrexia [Unknown]
  - Hyperglycaemia [Unknown]
  - Deep vein thrombosis [Unknown]
  - Infection [Unknown]
  - Neutropenia [Unknown]
  - Pulmonary embolism [Unknown]
